FAERS Safety Report 7347593-2 (Version None)
Quarter: 2011Q1

REPORT INFORMATION
  Report Type: 
  Country: None (occurrence: None)
  Receive Date: 20110218
  Receipt Date: 20100507
  Transmission Date: 20110831
  Serious: Yes (Other)
  Sender: FDA-Public Use
  Company Number: CART-1000039

PATIENT
  Age: 36 Year
  Sex: Female

DRUGS (1)
  1. CARTICEL [Suspect]
     Indication: CARTILAGE INJURY
     Dosage: INTRA-ARTICULAR
     Route: 014
     Dates: start: 20090914, end: 20090914

REACTIONS (4)
  - LOOSE BODY IN JOINT [None]
  - JOINT SWELLING [None]
  - ARTHRALGIA [None]
  - TREATMENT FAILURE [None]
